FAERS Safety Report 7817922-1 (Version None)
Quarter: 2011Q4

REPORT INFORMATION
  Report Type: 
  Country: None (occurrence: None)
  Receive Date: 20111017
  Receipt Date: 20111011
  Transmission Date: 20120403
  Serious: Yes (Hospitalization)
  Sender: FDA-Public Use
  Company Number: US-GLAXOSMITHKLINE-A0890320A

PATIENT
  Sex: Female
  Weight: 95 kg

DRUGS (15)
  1. ASPIRIN [Concomitant]
  2. ADVAIR DISKUS 100/50 [Concomitant]
  3. COLACE [Concomitant]
  4. METOPROLOL TARTRATE [Concomitant]
  5. SIMVASTATIN [Concomitant]
  6. GLIPIZIDE [Concomitant]
  7. AVANDIA [Suspect]
     Indication: DIABETES MELLITUS
     Dosage: 4MG PER DAY
     Route: 048
     Dates: start: 20060101, end: 20100716
  8. POTASSIUM [Concomitant]
  9. ACETAMINOPHEN [Concomitant]
  10. HYDROCHLOROTHIAZIDE [Concomitant]
  11. HYDROCODONE BITARTRATE [Concomitant]
  12. COUMADIN [Concomitant]
  13. NEURONTIN [Concomitant]
  14. LISINOPRIL [Concomitant]
  15. ALBUTEROL [Concomitant]

REACTIONS (3)
  - CARDIOMEGALY [None]
  - CARDIAC FAILURE CONGESTIVE [None]
  - PULMONARY EMBOLISM [None]
